FAERS Safety Report 16454656 (Version 1)
Quarter: 2019Q2

REPORT INFORMATION
  Report Type: Spontaneous
  Country: US (occurrence: US)
  Receive Date: 20190619
  Receipt Date: 20190619
  Transmission Date: 20190711
  Serious: No
  Sender: FDA-Public Use
  Company Number: US-ROCHE-2139043

PATIENT
  Age: 56 Year
  Sex: Female

DRUGS (2)
  1. ACTEMRA [Suspect]
     Active Substance: TOCILIZUMAB
     Indication: RHEUMATOID ARTHRITIS
     Dosage: 162 MG/0.9 ML PRE-FILLED SYRINGE ;ONGOING: NO
     Route: 058
  2. ACTEMRA [Suspect]
     Active Substance: TOCILIZUMAB
     Dosage: 162 MG/0.9 ML PRE-FILLED SYRINGE ;ONGOING: YES
     Route: 058

REACTIONS (4)
  - Ill-defined disorder [Unknown]
  - Extra dose administered [Unknown]
  - Product storage error [Unknown]
  - Syringe issue [Unknown]
